FAERS Safety Report 6765309-5 (Version None)
Quarter: 2010Q2

REPORT INFORMATION
  Report Type: 
  Country: None (occurrence: None)
  Receive Date: 20100611
  Receipt Date: 20100601
  Transmission Date: 20101027
  Serious: Yes (Other)
  Sender: FDA-Public Use
  Company Number: FR-JNJFOC-20100602820

PATIENT
  Sex: Male
  Weight: 93 kg

DRUGS (10)
  1. REOPRO [Suspect]
     Indication: ARTERIOGRAM CORONARY
     Route: 022
  2. PRASUGREL [Suspect]
     Indication: DRUG USE FOR UNKNOWN INDICATION
     Route: 048
  3. CEFOTAXIME [Concomitant]
     Indication: DRUG USE FOR UNKNOWN INDICATION
  4. CEFOTAXIME [Concomitant]
  5. CEFOTAXIME [Concomitant]
     Indication: PNEUMONIA ASPIRATION
  6. CEFOTAXIME [Concomitant]
  7. PLAVIX [Concomitant]
     Indication: DRUG USE FOR UNKNOWN INDICATION
  8. ASPEGIC 1000 [Concomitant]
     Indication: DRUG USE FOR UNKNOWN INDICATION
  9. PIPERACILLIN AND TAZOBACTAM [Concomitant]
     Indication: DRUG USE FOR UNKNOWN INDICATION
  10. IMIPENEM AND CILASTATIN SODIUM [Concomitant]
     Indication: DRUG USE FOR UNKNOWN INDICATION

REACTIONS (4)
  - DRUG RASH WITH EOSINOPHILIA AND SYSTEMIC SYMPTOMS [None]
  - PNEUMONIA ASPIRATION [None]
  - SEPTIC SHOCK [None]
  - TRANSAMINASES INCREASED [None]
